FAERS Safety Report 4330200-0 (Version None)
Quarter: 2004Q2

REPORT INFORMATION
  Report Type: 
  Country: None (occurrence: None)
  Receive Date: 20040401
  Receipt Date: 20040323
  Transmission Date: 20050107
  Serious: Yes (Death)
  Sender: FDA-Public Use
  Company Number: USA-2004-0014033

PATIENT
  Age: 46 Year
  Sex: Male

DRUGS (4)
  1. MORPHINE SULFATE [Suspect]
  2. AMITRIPTYLINE HCL [Suspect]
  3. PROPRANOLOL [Suspect]
  4. VERAPAMIL [Suspect]

REACTIONS (7)
  - ACCIDENTAL OVERDOSE [None]
  - ASCITES [None]
  - ATHEROSCLEROSIS [None]
  - COMA [None]
  - DRUG TOXICITY [None]
  - PANCREATITIS ACUTE [None]
  - SYNCOPE [None]
